FAERS Safety Report 5969137-X (Version None)
Quarter: 2008Q4

REPORT INFORMATION
  Report Type: 
  Country: None (occurrence: None)
  Receive Date: 20081126
  Receipt Date: 20081117
  Transmission Date: 20090506
  Serious: Yes (Hospitalization)
  Sender: FDA-Public Use
  Company Number: US-WATSON-2008-06816

PATIENT
  Sex: Female

DRUGS (2)
  1. MINOCYCLINE HYDROCHLORIDE (WATSON LABORATORIES) [Suspect]
     Indication: ACNE
     Dosage: 100 MG, BID
     Route: 048
     Dates: start: 20080716, end: 20081101
  2. DIFFERIN [Concomitant]
     Indication: ACNE
     Dosage: UNK
     Route: 065
     Dates: start: 20080716

REACTIONS (3)
  - APLASTIC ANAEMIA [None]
  - FATIGUE [None]
  - PANCYTOPENIA [None]
